FAERS Safety Report 8968478 (Version 1)
Quarter: 2012Q4

REPORT INFORMATION
  Report Type: 
  Country: US (occurrence: US)
  Receive Date: 20121218
  Receipt Date: 20121218
  Transmission Date: 20130627
  Serious: No
  Sender: FDA-Public Use
  Company Number: US-BRISTOL-MYERS SQUIBB COMPANY-16381899

PATIENT
  Sex: Male

DRUGS (3)
  1. ABILIFY [Suspect]
     Indication: DEPRESSION
  2. WELLBUTRIN [Suspect]
     Indication: DEPRESSION
  3. ZOLOFT [Suspect]

REACTIONS (2)
  - Restless legs syndrome [Recovered/Resolved]
  - Weight increased [Unknown]
